FAERS Safety Report 6190502-2 (Version None)
Quarter: 2009Q2

REPORT INFORMATION
  Report Type: 
  Country: None (occurrence: None)
  Receive Date: 20090513
  Receipt Date: 20090513
  Transmission Date: 20091009
  Serious: No
  Sender: FDA-Public Use
  Company Number: None

PATIENT
  Age: 55 Year
  Sex: Female
  Weight: 73.9363 kg

DRUGS (1)
  1. VYTORIN [Suspect]
     Indication: HYPERLIPIDAEMIA
     Dosage: 10/40 ONCE/DAY PO
     Route: 048
     Dates: start: 20081226, end: 20090310

REACTIONS (2)
  - ALANINE AMINOTRANSFERASE INCREASED [None]
  - ASPARTATE AMINOTRANSFERASE INCREASED [None]
